FAERS Safety Report 4880395-5 (Version None)
Quarter: 2005Q4

REPORT INFORMATION
  Report Type: 
  Country: None (occurrence: None)
  Receive Date: 20051223
  Receipt Date: 20051010
  Transmission Date: 20060501
  Serious: No
  Sender: FDA-Public Use
  Company Number: 05P-163-0313323-00

PATIENT
  Age: 31 Year
  Sex: Female
  Weight: 76.8847 kg

DRUGS (6)
  1. HUMIRA [Suspect]
     Indication: RHEUMATOID ARTHRITIS
     Dosage: 40 MG, 1 IN 2 WK, SUBCUTANEOUS
     Route: 058
  2. FOLIC ACID [Concomitant]
  3. CELECOXIB [Concomitant]
  4. TRAMADOL HCL [Concomitant]
  5. LEKOVIT CA [Concomitant]
  6. CLARINEX [Concomitant]

REACTIONS (2)
  - ALANINE AMINOTRANSFERASE INCREASED [None]
  - ASPARTATE AMINOTRANSFERASE INCREASED [None]
